FAERS Safety Report 7492652-7 (Version None)
Quarter: 2011Q2

REPORT INFORMATION
  Report Type: 
  Country: None (occurrence: None)
  Receive Date: 20110519
  Receipt Date: 20081016
  Transmission Date: 20111010
  Serious: Yes (Death, Other)
  Sender: FDA-Public Use
  Company Number: US-BAYER-200836267NA

PATIENT
  Age: 40 Year
  Sex: Male
  Weight: 128 kg

DRUGS (14)
  1. KEFZOL [Concomitant]
     Dosage: 4 GRAMS
     Route: 042
     Dates: start: 20051117
  2. TRASYLOL [Suspect]
     Indication: AORTIC DISSECTION
     Dosage: 200ML PUMP PRIME
     Route: 042
     Dates: start: 20051117
  3. RED BLOOD CELLS [Concomitant]
     Dosage: 10 UNITS
     Route: 042
     Dates: start: 20051117
  4. LOPRESSOR [Concomitant]
     Dosage: UNK
     Route: 042
     Dates: start: 20041117
  5. NIPRIDE [Concomitant]
     Dosage: UNK
     Route: 042
     Dates: start: 20051117
  6. REGULAR INSULIN [Concomitant]
     Dosage: 120 UNITS
     Route: 042
     Dates: start: 20041117
  7. TRASYLOL [Suspect]
     Indication: CORONARY ARTERY BYPASS
  8. LABETALOL [Concomitant]
     Dosage: UNK
     Route: 042
     Dates: start: 20051117
  9. LASIX [Concomitant]
     Dosage: UNK
     Route: 042
     Dates: start: 20051117
  10. FRESH FROZEN PLASMA [Concomitant]
     Dosage: 6 UNITS
     Route: 042
     Dates: start: 20051117
  11. HEPARIN [Concomitant]
     Dosage: 35,000UNITS
     Route: 042
     Dates: start: 20051117
  12. MORPHINE [Concomitant]
     Dosage: 10MG
     Route: 042
     Dates: start: 20051117
  13. NITROGLYCERIN [Concomitant]
     Dosage: UNK
     Route: 042
     Dates: start: 20051117, end: 20051118
  14. LISINOPRIL [Concomitant]
     Dosage: 10MG
     Route: 042

REACTIONS (12)
  - ANXIETY [None]
  - INJURY [None]
  - RENAL FAILURE [None]
  - STRESS [None]
  - RENAL INJURY [None]
  - FEAR [None]
  - RENAL IMPAIRMENT [None]
  - ANHEDONIA [None]
  - MULTI-ORGAN FAILURE [None]
  - DEATH [None]
  - UNEVALUABLE EVENT [None]
  - PAIN [None]
